FAERS Safety Report 15346995 (Version 2)
Quarter: 2018Q4

REPORT INFORMATION
  Report Type: Report from Study
  Country: NL (occurrence: NL)
  Receive Date: 20180904
  Receipt Date: 20181221
  Transmission Date: 20190204
  Serious: Yes (Hospitalization)
  Sender: FDA-Public Use
  Company Number: PHHY2018NL088191

PATIENT
  Age: 70 Year
  Sex: Female

DRUGS (7)
  1. SAFLUTAN [Concomitant]
     Active Substance: TAFLUPROST
     Indication: INTRAOCULAR PRESSURE TEST ABNORMAL
     Dosage: 0.9 ML, QD (1 DROP FOR THE NIGHT)
     Route: 065
  2. ATORVASTATIN [Concomitant]
     Active Substance: ATORVASTATIN
     Indication: BLOOD CHOLESTEROL ABNORMAL
     Dosage: 40 MG, QD (IN EVENING)
     Route: 065
  3. SIMBRINZA [Concomitant]
     Active Substance: BRIMONIDINE TARTRATE\BRINZOLAMIDE
     Indication: INTRAOCULAR PRESSURE TEST ABNORMAL
     Dosage: 1 DRP, BID (10 MG/ML - 2 MG/ML, BID (1 DROP BOTH EYES)
     Route: 065
  4. PREGABALIN. [Concomitant]
     Active Substance: PREGABALIN
     Indication: TENDONITIS
     Dosage: 1 DF, QD (1-2 DF)
     Route: 065
  5. ARTELAC [Concomitant]
     Active Substance: HYPROMELLOSES
     Indication: DRY EYE
     Dosage: 0.6 ML, (1 DROP BOTH EYES)
     Route: 065
  6. RAMIPRIL AUROBINDO [Concomitant]
     Active Substance: RAMIPRIL
     Indication: BLOOD PRESSURE ABNORMAL
     Dosage: 10 MG, QD (IN THE MORNING)
     Route: 065
  7. SANDOSTATIN LAR DEPOT [Suspect]
     Active Substance: OCTREOTIDE ACETATE
     Indication: ACROMEGALY
     Dosage: 30MG/2ML, QMO
     Route: 030

REACTIONS (2)
  - Musculoskeletal pain [Recovering/Resolving]
  - Arthralgia [Unknown]

NARRATIVE: CASE EVENT DATE: 20180809
